FAERS Safety Report 24938306 (Version 1)
Quarter: 2025Q1

REPORT INFORMATION
  Report Type: Spontaneous
  Country: FR (occurrence: FR)
  Receive Date: 20250206
  Receipt Date: 20250206
  Transmission Date: 20250409
  Serious: Yes (Life-Threatening)
  Sender: MYLAN
  Company Number: None

PATIENT
  Age: 64 Year
  Sex: Female
  Weight: 53 kg

DRUGS (8)
  1. PROPOFOL [Suspect]
     Active Substance: PROPOFOL
     Indication: Anaesthesia
     Route: 042
     Dates: start: 20250113, end: 20250113
  2. SUFENTANIL [Suspect]
     Active Substance: SUFENTANIL
     Indication: Anaesthesia
     Route: 042
     Dates: start: 20250113, end: 20250113
  3. DEXAMETHASONE [Suspect]
     Active Substance: DEXAMETHASONE
     Indication: Product used for unknown indication
     Route: 042
     Dates: start: 20250113, end: 20250113
  4. CEFAZOLIN [Suspect]
     Active Substance: CEFAZOLIN
     Indication: Product used for unknown indication
     Route: 042
     Dates: start: 20250113, end: 20250113
  5. LIDOCAINE [Suspect]
     Active Substance: LIDOCAINE
     Indication: Anaesthesia
     Route: 065
     Dates: start: 20250113, end: 20250113
  6. KETAMINE [Suspect]
     Active Substance: KETAMINE
     Indication: Anaesthesia
     Route: 042
     Dates: start: 20250113, end: 20250113
  7. TRACRIUM [Suspect]
     Active Substance: ATRACURIUM BESYLATE
     Indication: Anaesthesia
     Route: 042
     Dates: start: 20250113, end: 20250113
  8. EPHEDRINE [Suspect]
     Active Substance: EPHEDRINE
     Indication: Product used for unknown indication
     Route: 042
     Dates: start: 20250113, end: 20250113

REACTIONS (1)
  - Anaphylactic shock [Recovered/Resolved]

NARRATIVE: CASE EVENT DATE: 20250113
